FAERS Safety Report 8575399-5 (Version None)
Quarter: 2012Q2

REPORT INFORMATION
  Report Type: 
  Country: None (occurrence: None)
  Receive Date: 20120423
  Receipt Date: 20100928
  Transmission Date: 20120825
  Serious: Yes (Other)
  Sender: FDA-Public Use
  Company Number: PHHY2010US39051

PATIENT
  Age: 90 Year
  Sex: Male

DRUGS (1)
  1. EXJADE [Suspect]
     Indication: IRON OVERLOAD
     Dosage: 1625 MG, QD, ORAL
     Route: 048
     Dates: start: 20090401, end: 20100201

REACTIONS (4)
  - DRUG INEFFECTIVE [None]
  - RENAL FAILURE [None]
  - BLOOD UREA INCREASED [None]
  - BLOOD CREATININE INCREASED [None]
